FAERS Safety Report 6030172-7 (Version None)
Quarter: 2009Q1

REPORT INFORMATION
  Report Type: 
  Country: None (occurrence: None)
  Receive Date: 20090105
  Receipt Date: 20090105
  Transmission Date: 20090719
  Serious: Yes (Life-Threatening, Hospitalization, Other)
  Sender: FDA-Public Use
  Company Number: None

PATIENT
  Sex: Male
  Weight: 106.5953 kg

DRUGS (41)
  1. HIGH POTENCY MAGNESIUM 500 MG TABLETS PILGRIM'S PRIDE [Suspect]
     Indication: CARDIAC FAILURE CONGESTIVE
     Dosage: 4.5 GM DAILY PO
     Route: 048
  2. HIGH POTENCY MAGNESIUM 500 MG TABLETS PILGRIM'S PRIDE [Suspect]
     Indication: DIABETES MELLITUS
     Dosage: 4.5 GM DAILY PO
     Route: 048
  3. HYDROCORTISONE [Concomitant]
  4. AMITIZA [Concomitant]
  5. REVERATROL [Concomitant]
  6. RESVVERATROL [Concomitant]
  7. DECADRON [Concomitant]
  8. SYNTHROID [Concomitant]
  9. PROZAC [Concomitant]
  10. COUMADIN [Concomitant]
  11. PLAVIX [Concomitant]
  12. TENEX [Concomitant]
  13. SPIRONOLACTONE [Concomitant]
  14. HYDROXYZINE HCL [Concomitant]
  15. SINGULAIR [Concomitant]
  16. K-DUR [Concomitant]
  17. ALLEGRA [Concomitant]
  18. CADUET [Concomitant]
  19. MECLIZINE [Concomitant]
  20. ZAROXOLYN [Concomitant]
  21. LASIX [Concomitant]
  22. DARVOCET [Concomitant]
  23. NOVOLOG [Concomitant]
  24. NOVOLIN-N INSULIN [Concomitant]
  25. NEXIUM [Concomitant]
  26. ADVAIR DISKUS 250/50 [Concomitant]
  27. ANDROGEL [Concomitant]
  28. SPIRIVA [Concomitant]
  29. LIDODERM [Concomitant]
  30. ALBUTEROL [Concomitant]
  31. ACETYL-L CARNIYINE [Concomitant]
  32. ALPHA-LIPOIC ACID [Concomitant]
  33. BETAINE [Concomitant]
  34. CHROMIUM IODINATE [Concomitant]
  35. COENZYME Q10 [Concomitant]
  36. MILK THISTLE SEED [Concomitant]
  37. QUERCETIN [Concomitant]
  38. TAURINE [Concomitant]
  39. MULTIPLE VITAMIN/MINERAL [Concomitant]
  40. TUMERIC CURCUMIN [Concomitant]
  41. RESVREATROL [Concomitant]

REACTIONS (6)
  - ASTHENIA [None]
  - CONFUSIONAL STATE [None]
  - FALL [None]
  - LOSS OF CONSCIOUSNESS [None]
  - MUSCULAR WEAKNESS [None]
  - WALKING AID USER [None]
